FAERS Safety Report 6197126-1 (Version None)
Quarter: 2009Q2

REPORT INFORMATION
  Report Type: 
  Country: None (occurrence: None)
  Receive Date: 20090518
  Receipt Date: 20090518
  Transmission Date: 20091009
  Serious: No
  Sender: FDA-Public Use
  Company Number: None

PATIENT
  Age: 26 Year
  Sex: Female
  Weight: 52.1637 kg

DRUGS (1)
  1. TREXIMET [Suspect]
     Indication: MIGRAINE WITH AURA
     Dosage: 1 TABLET ACUTE PO
     Route: 048
     Dates: start: 20090516, end: 20090516

REACTIONS (1)
  - BURNING SENSATION [None]
